FAERS Safety Report 25356657 (Version 1)
Quarter: 2025Q2

REPORT INFORMATION
  Report Type: Spontaneous
  Country: CZ (occurrence: CZ)
  Receive Date: 20250526
  Receipt Date: 20250526
  Transmission Date: 20250717
  Serious: Yes (Life-Threatening, Hospitalization, Other)
  Sender: MERCK SHARP & DOHME LLC
  Company Number: None

PATIENT
  Age: 50 Year
  Sex: Female
  Weight: 39 kg

DRUGS (16)
  1. KEYTRUDA [Suspect]
     Active Substance: PEMBROLIZUMAB
     Indication: Lip and/or oral cavity cancer
     Dosage: PEMBROLIZUMAB FLAT DOSE 200 MG ? 21 DAYS. A TOTAL OF 21 CYCLES ADMINISTERED IN THE BEGINNING, 6 C...
     Route: 042
     Dates: start: 20240213, end: 20250403
  2. Degan 10mg [Concomitant]
     Indication: Nausea
     Dosage: DURING NAUSEA (1-1-1)
     Route: 048
  3. Calcichew D3 500mg/400UT [Concomitant]
     Dosage: 500 MG + 400 UT (0-0-0-1)
     Route: 048
  4. Maltofer fol 100mg/0.35mg [Concomitant]
     Dosage: 100MG 0.35MG (1-0-0)
     Route: 048
  5. MEDROL [Concomitant]
     Active Substance: METHYLPREDNISOLONE
     Dosage: (1-0-0)
     Route: 048
  6. Ultracod 500mg/30mg [Concomitant]
     Indication: Pain
     Route: 048
  7. Controloc 40mg [Concomitant]
     Dosage: ON AN EMPTY STOMACH (1-0-1)
     Route: 048
  8. PREGABALIN [Concomitant]
     Active Substance: PREGABALIN
     Dosage: (0-0-1)
     Route: 048
  9. Verospiron 50mg [Concomitant]
     Dosage: (0-1-0)
     Route: 048
  10. Megace 160mg [Concomitant]
     Dosage: (1-0-1)
     Route: 048
  11. Recoxa 15mg [Concomitant]
     Indication: Pain
     Dosage: FOR PAIN (1-0-0)
     Route: 048
  12. Vigantol 0.5mg/ml [Concomitant]
     Dosage: DOSAGE: 0.5 MG/ML 5 DROPS ON EVEN DAYS (5-0-0)
     Route: 048
  13. Euthyrox 100mcg [Concomitant]
     Dosage: ON AN EMPTY STOMACH (1-0-0)
     Route: 048
  14. NOVALGIN (METAMIZOLE SODIUM) [Concomitant]
     Active Substance: METAMIZOLE SODIUM
     Route: 048
  15. CISPLATIN [Suspect]
     Active Substance: CISPLATIN
     Indication: Lip and/or oral cavity cancer
  16. FLUOROURACIL [Suspect]
     Active Substance: FLUOROURACIL
     Indication: Lip and/or oral cavity cancer

REACTIONS (3)
  - Enterocolitis [Recovering/Resolving]
  - Diarrhoea [Recovering/Resolving]
  - Vomiting [Recovering/Resolving]

NARRATIVE: CASE EVENT DATE: 20250408
